FAERS Safety Report 5610912-9 (Version None)
Quarter: 2008Q1

REPORT INFORMATION
  Report Type: 
  Country: None (occurrence: None)
  Receive Date: 20080201
  Receipt Date: 20080130
  Transmission Date: 20080703
  Serious: Yes (Hospitalization)
  Sender: FDA-Public Use
  Company Number: FR-BRISTOL-MYERS SQUIBB COMPANY-14060164

PATIENT
  Age: 49 Year
  Sex: Male
  Weight: 52 kg

DRUGS (5)
  1. SUSTIVA [Suspect]
     Indication: HIV INFECTION
     Dates: start: 20070127
  2. TRUVADA [Suspect]
     Indication: HIV INFECTION
     Dosage: 1 DOSAGE FORM =1 TABLET.
     Dates: start: 20070127
  3. RIFATER [Concomitant]
     Indication: TUBERCULOSIS
     Dosage: 1 DOSAGE FORM = 5 TABLETS.
     Dates: start: 20071223
  4. BACTRIM [Concomitant]
     Indication: PROPHYLAXIS
     Dates: start: 20071123
  5. VITAMIN B6 [Concomitant]
     Indication: HYPOVITAMINOSIS
     Dates: start: 20071227

REACTIONS (6)
  - COUGH [None]
  - DIARRHOEA [None]
  - HYPERHIDROSIS [None]
  - IMMUNE RECONSTITUTION SYNDROME [None]
  - INFLAMMATION [None]
  - PYREXIA [None]
